FAERS Safety Report 10979028 (Version 3)
Quarter: 2015Q2

REPORT INFORMATION
  Report Type: Spontaneous
  Country: US (occurrence: US)
  Receive Date: 20150402
  Receipt Date: 20150612
  Transmission Date: 20150821
  Serious: Yes (Other)
  Sender: FDA-Public Use
  Company Number: US-PFIZER INC-2015112637

PATIENT
  Sex: Female

DRUGS (2)
  1. LYRICA [Suspect]
     Active Substance: PREGABALIN
     Dosage: 225 MG, UNK
  2. CELEBREX [Suspect]
     Active Substance: CELECOXIB
     Dosage: 200 MG, UNK

REACTIONS (2)
  - Arthritis [Unknown]
  - Back disorder [Unknown]
